FAERS Safety Report 17378824 (Version 1)
Quarter: 2020Q1

REPORT INFORMATION
  Report Type: Spontaneous
  Country: US (occurrence: US)
  Receive Date: 20200122
  Receipt Date: 20200122
  Transmission Date: 20200409
  Serious: Yes (Disabling)
  Sender: FDA-Public Use
  Company Number: None

PATIENT
  Sex: Female
  Weight: 63.5 kg

DRUGS (3)
  1. CLONAZEPAM 1 MG SANDOZ [Suspect]
     Active Substance: CLONAZEPAM
     Dates: start: 2014
  2. KLONOPIN [Suspect]
     Active Substance: CLONAZEPAM
     Indication: ANXIETY
     Dates: start: 1996, end: 1997
  3. CLONAZEPAM 1 MG ACTAVIS [Suspect]
     Active Substance: CLONAZEPAM
     Indication: ANXIETY
     Dates: start: 1996, end: 1997

REACTIONS (5)
  - Drug ineffective [None]
  - Insomnia [None]
  - Impaired work ability [None]
  - Product substitution issue [None]
  - Sleep terror [None]
